FAERS Safety Report 5719764-X (Version None)
Quarter: 2008Q2

REPORT INFORMATION
  Report Type: 
  Country: None (occurrence: None)
  Receive Date: 20080428
  Receipt Date: 20070305
  Transmission Date: 20081010
  Serious: No
  Sender: FDA-Public Use
  Company Number: A0641917A

PATIENT
  Age: 12 Year
  Sex: Male

DRUGS (11)
  1. ZOFRAN [Suspect]
     Indication: PROPHYLAXIS OF NAUSEA AND VOMITING
     Route: 048
     Dates: start: 20050701, end: 20060101
  2. ZOFRAN [Suspect]
     Route: 060
     Dates: start: 20050101, end: 20060101
  3. MEDROL [Concomitant]
  4. CLONIDINE HCL [Concomitant]
  5. CIPROHEPTADINE [Concomitant]
  6. METOCLOPRAMIDE [Concomitant]
  7. NASONEX [Concomitant]
  8. TOPICAL STEROIDS [Concomitant]
  9. PROTOPIC [Concomitant]
  10. LISIPRIL [Concomitant]
  11. PULMICORT [Concomitant]

REACTIONS (2)
  - DRUG INEFFECTIVE [None]
  - NAUSEA [None]
